FAERS Safety Report 8508736-8 (Version None)
Quarter: 2012Q3

REPORT INFORMATION
  Report Type: 
  Country: None (occurrence: None)
  Receive Date: 20120713
  Receipt Date: 20120202
  Transmission Date: 20120928
  Serious: Yes (Hospitalization, Other)
  Sender: FDA-Public Use
  Company Number: US-JNJCP-30000089440

PATIENT
  Sex: Male
  Weight: 11 kg

DRUGS (1)
  1. AVEENO BABY CALMING COMFORT LOTION 8OZ USA 381370036456 8137003645USA [Suspect]
     Indication: DRY SKIN
     Dosage: EVERY DAY AFTER BATH
     Route: 061
     Dates: start: 20111101

REACTIONS (1)
  - STAPHYLOCOCCAL INFECTION [None]
